FAERS Safety Report 9779450 (Version 1)
Quarter: 2013Q4

REPORT INFORMATION
  Report Type: Spontaneous
  Country: IT (occurrence: IT)
  Receive Date: 20131223
  Receipt Date: 20131223
  Transmission Date: 20140711
  Serious: Yes (Hospitalization)
  Sender: FDA-Public Use
  Company Number: IT-PFIZER INC-2013364604

PATIENT
  Age: 53 Year
  Sex: Male

DRUGS (3)
  1. TOTALIP [Suspect]
     Indication: HYPERCHOLESTEROLAEMIA
     Dosage: 10 MG, DAILY
     Route: 048
     Dates: start: 20111001, end: 20131029
  2. FLUGERAL [Concomitant]
     Indication: MIGRAINE
     Dosage: 10 MG, UNK
     Route: 048
  3. ALMOGRAN [Concomitant]
     Indication: MIGRAINE
     Dosage: 12.5 MG, UNK
     Route: 048

REACTIONS (5)
  - Blood creatine phosphokinase abnormal [Recovering/Resolving]
  - Blood lactate dehydrogenase increased [Recovering/Resolving]
  - Myalgia [Recovering/Resolving]
  - Myoglobin blood increased [Recovering/Resolving]
  - Rhabdomyolysis [Recovering/Resolving]
